FAERS Safety Report 15761398 (Version 1)
Quarter: 2018Q4

REPORT INFORMATION
  Report Type: Spontaneous
  Country: US (occurrence: US)
  Receive Date: 20181226
  Receipt Date: 20181226
  Transmission Date: 20190205
  Serious: Yes (Life-Threatening)
  Sender: FDA-Public Use
  Company Number: None

PATIENT
  Age: 42 Year
  Sex: Male
  Weight: 126.9 kg

DRUGS (1)
  1. VICTOZA [Suspect]
     Active Substance: LIRAGLUTIDE
     Indication: DIABETES MELLITUS
     Dosage: ?          QUANTITY:1.2 UNIT;OTHER ROUTE:INJECTION IN TO LOWER BELLY?

REACTIONS (4)
  - Drug-disease interaction [None]
  - Suicidal ideation [None]
  - Inhibitory drug interaction [None]
  - Mental disorder [None]

NARRATIVE: CASE EVENT DATE: 20181130
